FAERS Safety Report 14894343 (Version 1)
Quarter: 2018Q2

REPORT INFORMATION
  Report Type: Spontaneous
  Country: ZA (occurrence: ZA)
  Receive Date: 20180515
  Receipt Date: 20180515
  Transmission Date: 20180711
  Serious: Yes (Other)
  Sender: FDA-Public Use
  Company Number: ZA-ROCHE-2121852

PATIENT
  Age: 62 Year
  Sex: Female
  Weight: 54.5 kg

DRUGS (3)
  1. SOLU-CORTEF [Concomitant]
     Active Substance: HYDROCORTISONE SODIUM SUCCINATE
     Route: 042
  2. DIFLUCAN [Concomitant]
     Active Substance: FLUCONAZOLE
     Route: 065
  3. HERCEPTIN [Suspect]
     Active Substance: TRASTUZUMAB
     Indication: BREAST CANCER
     Route: 058
     Dates: start: 20180111, end: 20180426

REACTIONS (5)
  - Stomatitis [Not Recovered/Not Resolved]
  - Muscle spasms [Recovered/Resolved]
  - Pyrexia [Not Recovered/Not Resolved]
  - Rash pruritic [Unknown]
  - Urticaria [Recovered/Resolved]

NARRATIVE: CASE EVENT DATE: 20180315
